FAERS Safety Report 5767512-X (Version None)
Quarter: 2008Q2

REPORT INFORMATION
  Report Type: 
  Country: None (occurrence: None)
  Receive Date: 20080612
  Receipt Date: 20080530
  Transmission Date: 20081010
  Serious: Yes (Hospitalization)
  Sender: FDA-Public Use
  Company Number: US-JNJFOC-20080600693

PATIENT

DRUGS (1)
  1. DORIBAX [Suspect]
     Indication: INFECTION
     Route: 041

REACTIONS (1)
  - CONVULSION [None]
